FAERS Safety Report 9022227 (Version 2)
Quarter: 2013Q1

REPORT INFORMATION
  Report Type: Report from Study
  Country: CZ (occurrence: CZ)
  Receive Date: 20130118
  Receipt Date: 20130220
  Transmission Date: 20140127
  Serious: Yes (Hospitalization)
  Sender: FDA-Public Use
  Company Number: 2012SP000655

PATIENT
  Age: 55 Year
  Sex: Male
  Weight: 84 kg

DRUGS (2)
  1. SM-13496 [Suspect]
     Indication: BIPOLAR I DISORDER
     Route: 048
     Dates: start: 20120125, end: 20120221
  2. LITHIUM CARBONATE [Concomitant]
     Route: 048
     Dates: start: 2010

REACTIONS (1)
  - Mania [Not Recovered/Not Resolved]
